FAERS Safety Report 7070360-4 (Version None)
Quarter: 2010Q4

REPORT INFORMATION
  Report Type: 
  Country: None (occurrence: None)
  Receive Date: 20101029
  Receipt Date: 20101019
  Transmission Date: 20110411
  Serious: Yes (Other)
  Sender: FDA-Public Use
  Company Number: US-BIOGENIDEC-2009BI037659

PATIENT
  Age: 38 Year
  Sex: Female

DRUGS (4)
  1. TYSABRI [Suspect]
     Indication: MULTIPLE SCLEROSIS
     Route: 042
     Dates: start: 20070530, end: 20091002
  2. TYSABRI [Suspect]
     Route: 042
     Dates: start: 20100914
  3. PRENATAL VITAMINS [Concomitant]
  4. FOLIC ACID [Concomitant]

REACTIONS (2)
  - CAESAREAN SECTION [None]
  - PREGNANCY [None]
